FAERS Safety Report 4891035-3 (Version None)
Quarter: 2006Q1

REPORT INFORMATION
  Report Type: 
  Country: None (occurrence: None)
  Receive Date: 20060125
  Receipt Date: 20060123
  Transmission Date: 20060701
  Serious: Yes (Life-Threatening)
  Sender: FDA-Public Use
  Company Number: 2006AP00403

PATIENT
  Age: 70 Year
  Sex: Male

DRUGS (1)
  1. IRESSA [Suspect]
     Indication: LUNG NEOPLASM MALIGNANT
     Route: 048
     Dates: start: 20060116, end: 20060118

REACTIONS (1)
  - MYOCARDIAL INFARCTION [None]
